FAERS Safety Report 6232176-8 (Version None)
Quarter: 2009Q2

REPORT INFORMATION
  Report Type: 
  Country: None (occurrence: None)
  Receive Date: 20090617
  Receipt Date: 20090609
  Transmission Date: 20091009
  Serious: Yes (Hospitalization)
  Sender: FDA-Public Use
  Company Number: BR-BAYER-200823304LA

PATIENT
  Age: 47 Year
  Sex: Female

DRUGS (13)
  1. BETAFERON [Suspect]
     Indication: MULTIPLE SCLEROSIS
     Dosage: BETAJECT
     Route: 058
     Dates: start: 20090107
  2. BETAFERON [Suspect]
     Dosage: BETAJECT
     Route: 058
     Dates: start: 20080617, end: 20081020
  3. AMANTADINE HCL [Concomitant]
     Indication: FATIGUE
     Dosage: TOTAL DAILY DOSE: 300 MG  UNIT DOSE: 100 MG
     Route: 048
     Dates: start: 20080101
  4. PAROXETINE HCL [Concomitant]
     Indication: ANXIETY
     Dosage: TOTAL DAILY DOSE: 20 MG  UNIT DOSE: 20 MG
     Route: 048
  5. FLUNITRAZEPAM [Concomitant]
     Indication: INSOMNIA
     Dosage: TOTAL DAILY DOSE: 2 MG  UNIT DOSE: 1 MG
     Route: 048
  6. METHOTREXATE [Concomitant]
     Indication: ARTHRITIS
     Dosage: UNIT DOSE: 7.5 MG
     Route: 048
  7. TIZANIDINE HCL [Concomitant]
     Indication: RESTLESS LEGS SYNDROME
     Dosage: TOTAL DAILY DOSE: 4 MG  UNIT DOSE: 2 MG
     Route: 048
  8. OMEPRAZOLE [Concomitant]
     Indication: PROPHYLAXIS
     Dosage: TOTAL DAILY DOSE: 80 MG  UNIT DOSE: 40 MG
     Route: 048
  9. GALENIC FORMULATION [Concomitant]
     Indication: ARTHRITIS
     Route: 048
  10. SINVASTACOR [Concomitant]
     Indication: HYPERCHOLESTEROLAEMIA
     Route: 065
     Dates: start: 20081001
  11. UNKNOWN DRUG [Concomitant]
     Indication: CARDIAC STRESS TEST
     Route: 065
     Dates: start: 20081001, end: 20081001
  12. UNKNOWN DRUG [Concomitant]
     Indication: ANTICOAGULANT THERAPY
     Route: 065
     Dates: start: 20081001, end: 20081001
  13. UNKNOWN DRUG [Concomitant]
     Indication: CARDIAC DISORDER
     Route: 065

REACTIONS (4)
  - FATIGUE [None]
  - MOBILITY DECREASED [None]
  - MYOCARDIAL INFARCTION [None]
  - SILENT MYOCARDIAL INFARCTION [None]
